FAERS Safety Report 6408856-8 (Version None)
Quarter: 2009Q4

REPORT INFORMATION
  Report Type: 
  Country: None (occurrence: None)
  Receive Date: 20091021
  Receipt Date: 20091009
  Transmission Date: 20100525
  Serious: Yes (Hospitalization)
  Sender: FDA-Public Use
  Company Number: FR-CELGENEUS-056-20484-09100738

PATIENT
  Age: 83 Year
  Sex: Female

DRUGS (2)
  1. INNOHEP [Suspect]
     Route: 058
     Dates: start: 20090731, end: 20090824
  2. COUMADIN [Suspect]
     Route: 048
     Dates: start: 20090731, end: 20090824

REACTIONS (2)
  - HAEMATURIA [None]
  - HYPOPROTHROMBINAEMIA [None]
